FAERS Safety Report 5766406-3 (Version None)
Quarter: 2008Q2

REPORT INFORMATION
  Report Type: 
  Country: None (occurrence: None)
  Receive Date: 20080611
  Receipt Date: 20080515
  Transmission Date: 20081010
  Serious: No
  Sender: FDA-Public Use
  Company Number: US-BOEHRINGER INGELHEIM GMBH, GERMANY-2008-BP-07632BP

PATIENT
  Age: 69 Year
  Sex: Male

DRUGS (9)
  1. FLOMAX [Suspect]
     Indication: BENIGN PROSTATIC HYPERPLASIA
     Route: 048
     Dates: start: 20080415
  2. PLAVIX [Concomitant]
  3. COZAAR [Concomitant]
  4. ATENOLOL [Concomitant]
  5. NORVASC [Concomitant]
  6. OMEPRAZOLE [Concomitant]
  7. LOVASAL [Concomitant]
     Indication: MEDICAL DIET
  8. CRESTOR [Concomitant]
  9. LOVAZA (OMACOR) [Concomitant]

REACTIONS (2)
  - NOCTURIA [None]
  - RETROGRADE EJACULATION [None]
